FAERS Safety Report 7955445-X (Version None)
Quarter: 2011Q4

REPORT INFORMATION
  Report Type: 
  Country: None (occurrence: None)
  Receive Date: 20111202
  Receipt Date: 20111130
  Transmission Date: 20120403
  Serious: Yes (Hospitalization, Other)
  Sender: FDA-Public Use
  Company Number: US-TEVA-311583USA

PATIENT
  Sex: Female

DRUGS (2)
  1. COPAXONE [Suspect]
     Indication: MULTIPLE SCLEROSIS
     Dosage: 20 MILLIGRAM;
     Route: 058
     Dates: start: 20100901, end: 20111031
  2. TRIENESSA [Concomitant]

REACTIONS (4)
  - HEPATIC NECROSIS [None]
  - MEMORY IMPAIRMENT [None]
  - HEPATITIS [None]
  - TREATMENT NONCOMPLIANCE [None]
